FAERS Safety Report 7026252-X (Version None)
Quarter: 2010Q4

REPORT INFORMATION
  Report Type: 
  Country: None (occurrence: None)
  Receive Date: 20101004
  Receipt Date: 20100927
  Transmission Date: 20110411
  Serious: Yes (Life-Threatening)
  Sender: FDA-Public Use
  Company Number: BE-ELI_LILLY_AND_COMPANY-BE201009007087

PATIENT
  Sex: Female
  Weight: 57.6 kg

DRUGS (5)
  1. GEMCITABINE HCL [Suspect]
     Indication: NON-SMALL CELL LUNG CANCER
     Dosage: 1966 MG, UNK
     Dates: start: 20100629
  2. CISPLATIN [Suspect]
     Indication: NON-SMALL CELL LUNG CANCER
     Dosage: 118 MG, UNK
     Dates: start: 20100629
  3. ALDACTAZINE [Concomitant]
     Indication: OEDEMA PERIPHERAL
     Dates: start: 20100623
  4. DARBEPOETIN ALFA [Concomitant]
     Indication: ANAEMIA
     Dates: start: 20100907, end: 20100907
  5. MOXIFLOXACIN [Concomitant]
     Indication: NEUTROPENIA
     Dates: start: 20100907, end: 20100917

REACTIONS (1)
  - PULMONARY EMBOLISM [None]
